FAERS Safety Report 6257504-9 (Version None)
Quarter: 2009Q3

REPORT INFORMATION
  Report Type: 
  Country: None (occurrence: None)
  Receive Date: 20090706
  Receipt Date: 20090626
  Transmission Date: 20100115
  Serious: Yes (Other)
  Sender: FDA-Public Use
  Company Number: RO-ROCHE-640719

PATIENT
  Age: 32 Year
  Sex: Female

DRUGS (1)
  1. FUZEON [Suspect]
     Indication: HIV INFECTION
     Route: 058
     Dates: start: 20090620

REACTIONS (2)
  - CYANOSIS [None]
  - SYNCOPE [None]
